FAERS Safety Report 10731488 (Version 1)
Quarter: 2015Q1

REPORT INFORMATION
  Report Type: Spontaneous
  Country: DE (occurrence: DE)
  Receive Date: 20150123
  Receipt Date: 20150123
  Transmission Date: 20150721
  Serious: Yes (Congenital Anomaly)
  Sender: FDA-Public Use
  Company Number: PHHY2015DE008237

PATIENT

DRUGS (1)
  1. METHOTREXATE [Suspect]
     Active Substance: METHOTREXATE
     Indication: PSORIATIC ARTHROPATHY
     Dosage: (MATERNAL EXPOSURE PRIOR TO PREGNANCY: 15 MG QW)
     Route: 050

REACTIONS (3)
  - Maternal exposure before pregnancy [Unknown]
  - Exomphalos [Unknown]
  - Caudal regression syndrome [Unknown]
